FAERS Safety Report 22182309 (Version 1)
Quarter: 2023Q2

REPORT INFORMATION
  Report Type: Spontaneous
  Country: FR (occurrence: FR)
  Receive Date: 20230406
  Receipt Date: 20230406
  Transmission Date: 20230721
  Serious: Yes (Other)
  Sender: FDA-Public Use
  Company Number: FR-SA-2023SA104343

PATIENT
  Age: 27 Year
  Sex: Male

DRUGS (10)
  1. RIFAMPIN [Suspect]
     Active Substance: RIFAMPIN
     Indication: Tuberculosis of central nervous system
     Dosage: UNK
  2. RIFAMPIN [Suspect]
     Active Substance: RIFAMPIN
     Indication: Male genital tract tuberculosis
  3. ISONIAZID [Suspect]
     Active Substance: ISONIAZID
     Indication: Tuberculosis of central nervous system
     Dosage: UNK
  4. ISONIAZID [Suspect]
     Active Substance: ISONIAZID
     Indication: Male genital tract tuberculosis
  5. PYRAZINAMIDE [Suspect]
     Active Substance: PYRAZINAMIDE
     Indication: Tuberculosis of central nervous system
     Dosage: UNK
  6. PYRAZINAMIDE [Suspect]
     Active Substance: PYRAZINAMIDE
     Indication: Male genital tract tuberculosis
  7. PREDNISOLONE [Suspect]
     Active Substance: PREDNISOLONE
     Indication: Tuberculosis of central nervous system
     Dosage: 1 MG/KG, QD
  8. PREDNISOLONE [Suspect]
     Active Substance: PREDNISOLONE
     Indication: Male genital tract tuberculosis
     Dosage: UNK, TAPERED DURING THE SECOND MONTH (DAILY DOSE DECREASED BY 25% EVERY WEEK), AND STOPPED AFTER 2 M
  9. PREDNISOLONE [Suspect]
     Active Substance: PREDNISOLONE
     Indication: Immune reconstitution inflammatory syndrome
     Dosage: 1 MG/KG, QD
  10. PREDNISOLONE [Suspect]
     Active Substance: PREDNISOLONE
     Indication: Paradoxical drug reaction
     Dosage: UNK, SLOW TAPERING (10% DECREASE EVERY WEEK)

REACTIONS (5)
  - Immune reconstitution inflammatory syndrome [Recovering/Resolving]
  - Hemiparesis [Recovering/Resolving]
  - Tuberculoma of central nervous system [Recovering/Resolving]
  - Brain compression [Recovering/Resolving]
  - Paradoxical drug reaction [Recovering/Resolving]
